FAERS Safety Report 14936443 (Version 1)
Quarter: 2018Q2

REPORT INFORMATION
  Report Type: Spontaneous
  Country: FR (occurrence: FR)
  Receive Date: 20180525
  Receipt Date: 20180525
  Transmission Date: 20180711
  Serious: Yes (Other)
  Sender: FDA-Public Use
  Company Number: FR-MERCK KGAA-2048420

PATIENT
  Age: 55 Year
  Sex: Female

DRUGS (1)
  1. NOVOTHYROX [Suspect]
     Active Substance: LEVOTHYROXINE SODIUM
     Indication: HYPOTHYROIDISM
     Dates: start: 201704

REACTIONS (33)
  - Pain [Recovering/Resolving]
  - Apathy [Recovering/Resolving]
  - Quality of life decreased [Recovering/Resolving]
  - Blood thyroid stimulating hormone decreased [Recovered/Resolved]
  - Gait disturbance [Recovering/Resolving]
  - Madarosis [Recovering/Resolving]
  - Loss of personal independence in daily activities [Recovering/Resolving]
  - Personal relationship issue [Recovering/Resolving]
  - Mood swings [Recovering/Resolving]
  - Incontinence [Recovering/Resolving]
  - Sleep disorder [Recovering/Resolving]
  - Pruritus [Recovering/Resolving]
  - Tachycardia [Recovering/Resolving]
  - Circadian rhythm sleep disorder [Recovering/Resolving]
  - Gastrointestinal disorder [Recovering/Resolving]
  - Fear-related avoidance of activities [Recovering/Resolving]
  - Suicidal ideation [Recovering/Resolving]
  - Fatigue [Recovering/Resolving]
  - Social avoidant behaviour [Recovering/Resolving]
  - Bowel movement irregularity [Recovering/Resolving]
  - Poor quality sleep [Recovering/Resolving]
  - Presyncope [Recovering/Resolving]
  - Morbid thoughts [Recovering/Resolving]
  - Decreased appetite [Recovering/Resolving]
  - Paraesthesia [Recovering/Resolving]
  - Feeling abnormal [Recovering/Resolving]
  - Fear [Recovering/Resolving]
  - Irritability [Recovering/Resolving]
  - Depression [Recovering/Resolving]
  - Somnolence [Recovering/Resolving]
  - Alopecia [Recovering/Resolving]
  - Weight increased [Recovering/Resolving]
  - Diarrhoea [Recovering/Resolving]

NARRATIVE: CASE EVENT DATE: 2017
